FAERS Safety Report 6255074-2 (Version None)
Quarter: 2009Q3

REPORT INFORMATION
  Report Type: 
  Country: None (occurrence: None)
  Receive Date: 20090702
  Receipt Date: 20090618
  Transmission Date: 20100115
  Serious: Yes (Hospitalization)
  Sender: FDA-Public Use
  Company Number: JP-GENENTECH-277492

PATIENT
  Sex: Female

DRUGS (4)
  1. HERCEPTIN [Suspect]
     Indication: BREAST CANCER METASTATIC
     Dosage: 4 MG/KG, UNK
     Route: 041
     Dates: start: 20060222
  2. HERCEPTIN [Suspect]
     Dosage: 2 MG/KG, 1/WEEK
     Route: 041
     Dates: start: 20060309
  3. HERCEPTIN [Suspect]
     Dosage: 2 MG/KG, UNK
     Route: 041
     Dates: start: 20090107, end: 20090121
  4. TAXOL [Suspect]
     Indication: DRUG USE FOR UNKNOWN INDICATION
     Dosage: UNK
     Dates: start: 20060222, end: 20060831

REACTIONS (1)
  - MYASTHENIA GRAVIS [None]
